FAERS Safety Report 5486978-6 (Version None)
Quarter: 2007Q4

REPORT INFORMATION
  Report Type: 
  Country: None (occurrence: None)
  Receive Date: 20071012
  Receipt Date: 20071012
  Transmission Date: 20080405
  Serious: Yes (Life-Threatening, Hospitalization)
  Sender: FDA-Public Use
  Company Number: None

PATIENT
  Age: 73 Year
  Sex: Female
  Weight: 102.0593 kg

DRUGS (1)
  1. PROPOFOL [Suspect]
     Indication: KNEE ARTHROPLASTY
     Dates: start: 20070723, end: 20070723

REACTIONS (5)
  - BODY TEMPERATURE INCREASED [None]
  - CYANOSIS [None]
  - MALAISE [None]
  - SKIN DISCOLOURATION [None]
  - TREMOR [None]
